FAERS Safety Report 8950258 (Version 1)
Quarter: 2012Q4

REPORT INFORMATION
  Report Type: 
  Country: US (occurrence: US)
  Receive Date: 20121205
  Receipt Date: 20121205
  Transmission Date: 20130627
  Serious: Yes (Other)
  Sender: FDA-Public Use
  Company Number: US-ELI_LILLY_AND_COMPANY-US201211008498

PATIENT
  Sex: Male

DRUGS (9)
  1. FORTEO [Suspect]
     Indication: OSTEOPOROSIS
     Dosage: 20 ug, qd
     Dates: start: 201202
  2. AMLODIPINE [Concomitant]
     Dosage: 5 mg, qd
  3. SPIRIVA [Concomitant]
     Dosage: UNK, qd
  4. FLUTICASONE [Concomitant]
     Dosage: UNK, qd
  5. PROAIR [Concomitant]
     Dosage: 90 ug, prn
  6. AMITRIPTYLINE [Concomitant]
     Dosage: 50 mg, qd
  7. TRAZODONE [Concomitant]
     Dosage: 50 mg, qd
  8. FORADIL [Concomitant]
     Dosage: 12 ug, bid
  9. TESTOSTERONE [Concomitant]
     Dosage: every 2 weeks

REACTIONS (1)
  - Colon cancer [Not Recovered/Not Resolved]
